FAERS Safety Report 16400698 (Version 1)
Quarter: 2019Q2

REPORT INFORMATION
  Report Type: Report from Study
  Country: US (occurrence: US)
  Receive Date: 20190606
  Receipt Date: 20190606
  Transmission Date: 20190711
  Serious: Yes (Life-Threatening, Hospitalization, Other)
  Sender: FDA-Public Use
  Company Number: US-TEVA-2019-US-1059260

PATIENT
  Age: 30 Year
  Sex: Female

DRUGS (3)
  1. PROPOFOL. [Suspect]
     Active Substance: PROPOFOL
     Indication: SEDATIVE THERAPY
     Route: 042
  2. SODIUM CITRATE-CITRIC ACID [Suspect]
     Active Substance: CITRIC ACID MONOHYDRATE\TRISODIUM CITRATE DIHYDRATE
     Indication: BLOOD ALKALINISATION THERAPY
     Route: 048
  3. MIDAZOLAM [Suspect]
     Active Substance: MIDAZOLAM HYDROCHLORIDE
     Indication: SEDATIVE THERAPY
     Route: 042

REACTIONS (2)
  - Anaesthetic complication pulmonary [Recovered/Resolved]
  - Maternal exposure during pregnancy [Unknown]
